FAERS Safety Report 13989224 (Version 1)
Quarter: 2017Q3

REPORT INFORMATION
  Report Type: Report from Study
  Country: US (occurrence: US)
  Receive Date: 20170920
  Receipt Date: 20170920
  Transmission Date: 20171128
  Serious: Yes (Other)
  Sender: FDA-Public Use
  Company Number: US-ROCHE-1994192

PATIENT

DRUGS (6)
  1. HEPARIN [Suspect]
     Active Substance: HEPARIN SODIUM
     Indication: ACUTE MYOCARDIAL INFARCTION
     Route: 040
  2. ALTEPLASE. [Suspect]
     Active Substance: ALTEPLASE
     Dosage: 50 MG IN THE FIRST HOUR, AND 20 MG/HOUR FOR THE NEXT 2 HOURS (TOTAL DOSE 100 MG).
     Route: 042
  3. ALTEPLASE. [Suspect]
     Active Substance: ALTEPLASE
     Indication: ACUTE MYOCARDIAL INFARCTION
     Route: 040
  4. ASPIRIN. [Suspect]
     Active Substance: ASPIRIN
     Indication: ACUTE MYOCARDIAL INFARCTION
     Route: 048
  5. HEPARIN [Suspect]
     Active Substance: HEPARIN SODIUM
     Dosage: 1000 U/HOUR AND THE DOSE WAS ADJUSTED 6 HOURS LATER TO MAINTAIN AN ACTIVATED PARTIAL THROMBOPLASTIN
     Route: 042
  6. LIDOCAINE. [Concomitant]
     Active Substance: LIDOCAINE
     Dosage: 75 MG INTRAVENOUSLY), FOLLOWED BY A CONTINUOUS INFUSION OF 2 MG/MIN FOR 24 HOURS.
     Route: 042

REACTIONS (6)
  - Haemorrhage intracranial [Unknown]
  - Hypotension [Unknown]
  - Haemorrhage [Unknown]
  - Embolic stroke [Unknown]
  - Catheter site haematoma [Unknown]
  - Gastrointestinal haemorrhage [Unknown]
